FAERS Safety Report 6157015-5 (Version None)
Quarter: 2009Q2

REPORT INFORMATION
  Report Type: 
  Country: None (occurrence: None)
  Receive Date: 20090413
  Receipt Date: 20090402
  Transmission Date: 20091009
  Serious: Yes (Hospitalization)
  Sender: FDA-Public Use
  Company Number: GXKR2009SE04283

PATIENT
  Age: 84 Year
  Sex: Female

DRUGS (11)
  1. ENALAPRIL MALEATE SANDOZ (NGX) (ENALAPRIL MALEATE) TABLET, 5MG [Suspect]
     Indication: ESSENTIAL HYPERTENSION
     Dosage: 10 MG, DAILY, ORAL
     Route: 048
     Dates: start: 20081101, end: 20081127
  2. TEGRETOL [Suspect]
     Indication: STATUS EPILEPTICUS
     Dosage: 400 MG/DAY, ORAL
     Route: 048
     Dates: end: 20081127
  3. SALURES (BENDROFLUMETHIAZIDE) TABLET [Suspect]
     Indication: ESSENTIAL HYPERTENSION
     Dosage: ORAL
     Route: 048
     Dates: end: 20081127
  4. FELODIPINE [Suspect]
     Indication: ESSENTIAL HYPERTENSION
     Dosage: 10 MG, DAILY, ORAL
     Route: 048
     Dates: end: 20081127
  5. FRAGMIN (DALTEPARIN SODIUM, HEPARIN-FRACTION, SODIUM SALT) SOLUTION FO [Concomitant]
  6. LEVAXIN (LEVOTHYROXINE SODIUM) TABLET [Concomitant]
  7. HIRUDOID (MUCOPOLYSACCHARIDE POLYSULFURIC ACID ESTER) CREAM [Concomitant]
  8. PANODIL (PARACETAMOL) FILM-COATED TABLET [Concomitant]
  9. EMCONCOR (BISOPROLOL) FILM-COATED TABLET [Concomitant]
  10. FLUDENT (SODIUM FLUORIDE) [Concomitant]
  11. IMOVANE (ZOPICLONE) TABLET [Concomitant]

REACTIONS (2)
  - INAPPROPRIATE ANTIDIURETIC HORMONE SECRETION [None]
  - ORTHOSTATIC HYPOTENSION [None]
